FAERS Safety Report 7369348-5 (Version None)
Quarter: 2011Q1

REPORT INFORMATION
  Report Type: 
  Country: None (occurrence: None)
  Receive Date: 20110323
  Receipt Date: 20110318
  Transmission Date: 20110831
  Serious: Yes (Other)
  Sender: FDA-Public Use
  Company Number: AU-ROCHE-766369

PATIENT
  Age: 74 Year
  Sex: Male

DRUGS (5)
  1. CEFTRIAXONE SODIUM [Suspect]
     Route: 042
     Dates: start: 20101228
  2. MAGNESIUM ASPARTATE [Suspect]
     Route: 065
  3. PARACETAMOL [Suspect]
     Route: 065
  4. CLINDAMYCIN HYDROCHLORIDE [Suspect]
     Route: 065
  5. KEFLEX [Suspect]
     Route: 048
     Dates: start: 20101228

REACTIONS (6)
  - NAUSEA [None]
  - DERMATITIS EXFOLIATIVE [None]
  - HYPOTENSION [None]
  - PALMAR ERYTHEMA [None]
  - PRURITUS [None]
  - EYE SWELLING [None]
